FAERS Safety Report 4553953-5 (Version None)
Quarter: 2005Q1

REPORT INFORMATION
  Report Type: 
  Country: None (occurrence: None)
  Receive Date: 20050118
  Receipt Date: 20050105
  Transmission Date: 20050727
  Serious: Yes (Death, Hospitalization)
  Sender: FDA-Public Use
  Company Number: DE-JNJFOC-20050101344

PATIENT
  Age: 51 Year
  Sex: Male

DRUGS (2)
  1. INFLIXIMAB [Suspect]
     Dosage: 2 INFUSIONS
     Route: 042
  2. GLUCOCORTICOIDS [Concomitant]

REACTIONS (4)
  - ABSCESS [None]
  - MULTI-ORGAN FAILURE [None]
  - SEPSIS [None]
  - STAPHYLOCOCCAL INFECTION [None]
